FAERS Safety Report 24283426 (Version 2)
Quarter: 2024Q3

REPORT INFORMATION
  Report Type: Spontaneous
  Country: JP (occurrence: JP)
  Receive Date: 20240904
  Receipt Date: 20240919
  Transmission Date: 20241016
  Serious: No
  Sender: MERCK
  Company Number: JP-MSD-M2024-34870

PATIENT
  Age: 75 Year
  Sex: Male

DRUGS (1)
  1. LAGEVRIO [Suspect]
     Active Substance: MOLNUPIRAVIR
     Indication: COVID-19 treatment
     Dosage: 200 MILLIGRAM, BID
     Route: 048
     Dates: start: 202408, end: 2024

REACTIONS (1)
  - Accidental underdose [Unknown]

NARRATIVE: CASE EVENT DATE: 20240801
